FAERS Safety Report 4468100-8 (Version None)
Quarter: 2004Q4

REPORT INFORMATION
  Report Type: 
  Country: None (occurrence: None)
  Receive Date: 20041004
  Receipt Date: 20040927
  Transmission Date: 20050328
  Serious: Yes (Death)
  Sender: FDA-Public Use
  Company Number: 2004UW20316

PATIENT
  Age: 8 Month
  Sex: Male
  Weight: 9.5255 kg

DRUGS (2)
  1. ELAVIL [Suspect]
  2. NORTRIPTYLINE [Suspect]

REACTIONS (3)
  - ACCIDENTAL EXPOSURE [None]
  - DRUG SCREEN POSITIVE [None]
  - MEDICATION ERROR [None]
